FAERS Safety Report 10519312 (Version 1)
Quarter: 2014Q4

REPORT INFORMATION
  Report Type: Spontaneous
  Country: US (occurrence: US)
  Receive Date: 20141015
  Receipt Date: 20141015
  Transmission Date: 20150528
  Serious: No
  Sender: FDA-Public Use
  Company Number: US-ASTRAZENECA-2014SE75046

PATIENT
  Age: 27043 Day
  Sex: Female
  Weight: 71.2 kg

DRUGS (8)
  1. ZETIA [Concomitant]
     Active Substance: EZETIMIBE
  2. METOPROLOL TARTRATE. [Suspect]
     Active Substance: METOPROLOL TARTRATE
     Route: 065
  3. BRILINTA [Suspect]
     Active Substance: TICAGRELOR
     Indication: MYOCARDIAL INFARCTION
     Route: 048
     Dates: start: 20140929
  4. BRILINTA [Suspect]
     Active Substance: TICAGRELOR
     Indication: STENT PLACEMENT
     Route: 048
     Dates: start: 20140929
  5. OMEPRAZOLE. [Suspect]
     Active Substance: OMEPRAZOLE
     Indication: HIATUS HERNIA
     Route: 048
     Dates: start: 20140930
  6. ATORVASTATIN [Concomitant]
     Active Substance: ATORVASTATIN
  7. ASPIRIN. [Concomitant]
     Active Substance: ASPIRIN
  8. LOVAZA [Concomitant]
     Active Substance: OMEGA-3-ACID ETHYL ESTERS

REACTIONS (3)
  - Fatigue [Unknown]
  - Dyspnoea [Not Recovered/Not Resolved]
  - Gait disturbance [Unknown]

NARRATIVE: CASE EVENT DATE: 20140930
